FAERS Safety Report 17316057 (Version 4)
Quarter: 2021Q1

REPORT INFORMATION
  Report Type: Spontaneous
  Country: CN (occurrence: CN)
  Receive Date: 20200124
  Receipt Date: 20210112
  Transmission Date: 20210419
  Serious: Yes (Hospitalization)
  Sender: FDA-Public Use
  Company Number: CN-CELGENEUS-CHN-20200106855

PATIENT
  Age: 61 Year
  Sex: Male
  Weight: 54 kg

DRUGS (18)
  1. RECOMBINANT HUMAN GRANOCYTE COLONY?STIMULATING FACTOR [Concomitant]
     Indication: THROMBOCYTOPENIA
     Dosage: .1 MILLIGRAM
     Route: 058
     Dates: start: 20200112
  2. CARBOPLATIN. [Suspect]
     Active Substance: CARBOPLATIN
     Dosage: 557.3 MILLIGRAM
     Route: 041
     Dates: start: 20200114
  3. SERPLULIMAB. [Suspect]
     Active Substance: SERPLULIMAB
     Indication: NON-SMALL CELL LUNG CANCER
     Dosage: 235.8 MILLIGRAM
     Route: 041
     Dates: start: 20191221, end: 20191221
  4. PALONOSETRON. [Concomitant]
     Active Substance: PALONOSETRON HYDROCHLORIDE
     Indication: ANTIEMETIC SUPPORTIVE CARE
     Dosage: 5 (UNKNOWN UNIT)
     Route: 040
     Dates: start: 20191228, end: 20191228
  5. PALONOSETRON. [Concomitant]
     Active Substance: PALONOSETRON HYDROCHLORIDE
     Dosage: 5 (UNKNOWN UNIT)
     Route: 040
     Dates: start: 20200104, end: 20200104
  6. RECOMBINANT HUMAN THROMBOGENIN [Concomitant]
     Indication: THROMBOCYTOPENIA
     Dosage: 15000 IU (INTERNATIONAL UNIT)
     Route: 058
     Dates: start: 20191228, end: 20200104
  7. ABRAXANE [Suspect]
     Active Substance: PACLITAXEL
     Dosage: 152.5 MG
     Route: 041
     Dates: start: 20191228, end: 20191228
  8. ABRAXANE [Suspect]
     Active Substance: PACLITAXEL
     Dosage: 152.5 MG
     Route: 041
     Dates: start: 20200104, end: 20200104
  9. RECOMBINANT HUMAN GRANOCYTE COLONY?STIMULATING FACTOR [Concomitant]
     Indication: NEUTROPENIA
     Dosage: .2 MILLIGRAM
     Route: 058
     Dates: start: 20200104, end: 20200104
  10. AMBROXOL SODIUM CHLORIDE [Concomitant]
     Indication: COUGH
     Dosage: 30 (UNKNOWN UNIT)
     Route: 041
     Dates: start: 20191228, end: 20191228
  11. GLUTATHIONE [Concomitant]
     Active Substance: GLUTATHIONE
     Indication: PROPHYLAXIS
     Dosage: 1.8 (UNKNOWN UNIT)
     Route: 041
     Dates: start: 20191228, end: 20191228
  12. GLUTATHIONE [Concomitant]
     Active Substance: GLUTATHIONE
     Dosage: 1.8 (UNKNOWN UNIT)
     Route: 041
     Dates: start: 20200104, end: 20200104
  13. ABRAXANE [Suspect]
     Active Substance: PACLITAXEL
     Indication: NON-SMALL CELL LUNG CANCER
     Dosage: 152.5 MG
     Route: 041
     Dates: start: 20191221, end: 20191221
  14. RECOMBINANT HUMAN GRANOCYTE COLONY?STIMULATING FACTOR [Concomitant]
     Dosage: 15000 IU (INTERNATIONAL UNIT)
     Route: 058
  15. RECOMBINANT HUMAN GRANOCYTE COLONY?STIMULATING FACTOR [Concomitant]
     Indication: LEUKOPENIA
     Dosage: .3 MILLIGRAM
     Route: 058
     Dates: start: 20191228, end: 20191228
  16. ABRAXANE [Suspect]
     Active Substance: PACLITAXEL
     Dosage: 148.1 MILLIGRAM
     Route: 041
     Dates: start: 20200114
  17. CARBOPLATIN. [Suspect]
     Active Substance: CARBOPLATIN
     Indication: NON-SMALL CELL LUNG CANCER
     Dosage: 493.9 MILLIGRAM
     Route: 041
     Dates: start: 20191221
  18. SERPLULIMAB. [Suspect]
     Active Substance: SERPLULIMAB
     Dosage: 238.5 MILLIGRAM
     Route: 041
     Dates: start: 20200114

REACTIONS (2)
  - White blood cell count decreased [Recovered/Resolved]
  - Neutrophil count decreased [Recovered/Resolved]

NARRATIVE: CASE EVENT DATE: 20200108
